FAERS Safety Report 18638110 (Version 1)
Quarter: 2020Q4

REPORT INFORMATION
  Report Type: Spontaneous
  Country: GB (occurrence: GB)
  Receive Date: 20201219
  Receipt Date: 20201219
  Transmission Date: 20210114
  Serious: Yes (Hospitalization, Disabling, Other)
  Sender: FDA-Public Use
  Company Number: GB-AUROBINDO-AUR-APL-2020-061156

PATIENT
  Age: 22 Year
  Sex: Male

DRUGS (23)
  1. PHENOBARBITAL. [Suspect]
     Active Substance: PHENOBARBITAL
     Indication: STATUS EPILEPTICUS
     Dosage: UNK
     Route: 065
  2. MIDAZOLAM. [Suspect]
     Active Substance: MIDAZOLAM
     Indication: STATUS EPILEPTICUS
     Dosage: 20 MILLIGRAM, EVERY HOUR,UP TO 20MG/HR
     Route: 065
  3. CEFTRIAXONE. [Suspect]
     Active Substance: CEFTRIAXONE
     Indication: EVIDENCE BASED TREATMENT
     Dosage: UNK
     Route: 042
  4. ACYCLOVIR. [Suspect]
     Active Substance: ACYCLOVIR
     Indication: EVIDENCE BASED TREATMENT
     Dosage: UNK
     Route: 042
  5. PHENYTOIN. [Suspect]
     Active Substance: PHENYTOIN
     Indication: STATUS EPILEPTICUS
     Dosage: UNK
     Route: 065
  6. PLASMA [Concomitant]
     Active Substance: HUMAN PLASMA
     Indication: PRODUCT USED FOR UNKNOWN INDICATION
     Dosage: UNK
     Route: 065
  7. LACOSAMIDE. [Suspect]
     Active Substance: LACOSAMIDE
     Indication: STATUS EPILEPTICUS
     Dosage: UNK
     Route: 065
  8. TOPIRAMATE. [Suspect]
     Active Substance: TOPIRAMATE
     Indication: STATUS EPILEPTICUS
     Dosage: UNK
     Route: 065
  9. THIOPENTAL [Suspect]
     Active Substance: THIOPENTAL
     Indication: STATUS EPILEPTICUS
     Dosage: 7 MILLIGRAM/KILOGRAM, EVERY HOUR,UP TO 7 MG/KG/HR
     Route: 065
  10. METHYLPREDNISOLONE. [Suspect]
     Active Substance: METHYLPREDNISOLONE
     Indication: PRODUCT USED FOR UNKNOWN INDICATION
     Dosage: 1 GRAM, ONCE A DAY,TWO SEPARATE PULSES
     Route: 042
  11. PROPOFOL. [Suspect]
     Active Substance: PROPOFOL
     Indication: SEDATION
  12. CLOBAZAM. [Suspect]
     Active Substance: CLOBAZAM
     Indication: STATUS EPILEPTICUS
     Dosage: UNK
     Route: 065
  13. LORAZEPAM. [Suspect]
     Active Substance: LORAZEPAM
     Indication: PAROXYSMAL SYMPATHETIC HYPERACTIVITY
     Dosage: UNK
     Route: 065
  14. LEVETIRACETAM. [Suspect]
     Active Substance: LEVETIRACETAM
     Indication: STATUS EPILEPTICUS
     Dosage: UNK
     Route: 065
  15. METHYLPREDNISOLONE. [Suspect]
     Active Substance: METHYLPREDNISOLONE
     Dosage: 1 GRAM, ONCE A DAY,TWO SEPARATE PULSES
     Route: 042
  16. PROPOFOL. [Suspect]
     Active Substance: PROPOFOL
     Indication: STATUS EPILEPTICUS
     Dosage: 5 MILLIGRAM/KILOGRAM, EVERY HOUR
     Route: 040
  17. FENTANYL. [Suspect]
     Active Substance: FENTANYL
     Indication: SEDATION
     Dosage: UNK 300 MICROGRAM/KILOGRAM, EVERY HOUR,UP TO 300 UG/KG/H
     Route: 040
  18. SODIUM VALPROATE [Suspect]
     Active Substance: VALPROATE SODIUM
     Indication: STATUS EPILEPTICUS
     Dosage: UNK
     Route: 065
  19. KETAMINE [Suspect]
     Active Substance: KETAMINE
     Indication: STATUS EPILEPTICUS
     Dosage: 6 MILLIGRAM/KILOGRAM, EVERY HOUR
     Route: 065
  20. CLONAZEPAM. [Suspect]
     Active Substance: CLONAZEPAM
     Indication: STATUS EPILEPTICUS
     Dosage: UNK
     Route: 065
  21. PERAMPANEL [Suspect]
     Active Substance: PERAMPANEL
     Indication: STATUS EPILEPTICUS
     Dosage: 14 MILLIGRAM, ONCE A DAY,ADDED ON DAY 142 SLOWLY UP-TITRATED
     Route: 065
  22. IMMUNOGLOBULIN HUMAN NORMAL [Concomitant]
     Active Substance: HUMAN IMMUNOGLOBULIN G
     Indication: PRODUCT USED FOR UNKNOWN INDICATION
     Dosage: UNK 2 GRAM PER KILOGRAM, ONCE A DAY
     Route: 042
  23. REMIFENTANIL [Suspect]
     Active Substance: REMIFENTANIL
     Indication: SEDATION
     Dosage: UNK
     Route: 065

REACTIONS (14)
  - Deep vein thrombosis [Unknown]
  - Cognitive disorder [Not Recovered/Not Resolved]
  - Anaemia [Unknown]
  - Haematuria traumatic [Unknown]
  - Intentional product use issue [Unknown]
  - Thrombophlebitis [Unknown]
  - Weight decreased [Unknown]
  - Intensive care unit acquired weakness [Unknown]
  - Fungal infection [Unknown]
  - Muscle contracture [Unknown]
  - Liver function test abnormal [Unknown]
  - Infection [Unknown]
  - Product use in unapproved indication [Unknown]
  - Off label use [Unknown]
